FAERS Safety Report 20615042 (Version 3)
Quarter: 2023Q2

REPORT INFORMATION
  Report Type: Spontaneous
  Country: US (occurrence: None)
  Receive Date: 20220321
  Receipt Date: 20230505
  Transmission Date: 20230721
  Serious: Yes (Hospitalization, Other)
  Sender: FDA-Public Use
  Company Number: US-Hikma Pharmaceuticals-US-H14001-22-00745

PATIENT
  Age: 16 Year
  Sex: Male
  Weight: 69.2 kg

DRUGS (10)
  1. CYTARABINE [Suspect]
     Active Substance: CYTARABINE
     Indication: Acute lymphocytic leukaemia
     Route: 042
     Dates: start: 20211214
  2. MERCAPTOPURINE [Suspect]
     Active Substance: MERCAPTOPURINE
     Indication: Acute lymphocytic leukaemia
     Dosage: 2.5 TABLETS FIVE DAYS PER WEEK / 2 TABLETS TWO DAYS PER WEEK
     Route: 048
     Dates: start: 20211214, end: 20220222
  3. MERCAPTOPURINE [Suspect]
     Active Substance: MERCAPTOPURINE
     Dosage: 2.5 TABLETS FIVE DAYS PER WEEK / 2 TABLETS TWO DAYS PER WEEK
     Route: 048
     Dates: start: 20220301
  4. METHOTREXATE [Suspect]
     Active Substance: METHOTREXATE
     Indication: Acute lymphocytic leukaemia
     Route: 037
     Dates: start: 20211214, end: 20220222
  5. METHOTREXATE [Suspect]
     Active Substance: METHOTREXATE
     Route: 037
     Dates: start: 20220301
  6. VINCRISTINE [Suspect]
     Active Substance: VINCRISTINE
     Indication: Acute lymphocytic leukaemia
     Route: 042
     Dates: start: 20211214, end: 20220222
  7. VINCRISTINE [Suspect]
     Active Substance: VINCRISTINE
     Route: 042
     Dates: start: 20220301
  8. PEGASPARGASE [Suspect]
     Active Substance: PEGASPARGASE
     Indication: Acute lymphocytic leukaemia
     Route: 042
     Dates: start: 20211215
  9. RUXOLITINIB [Suspect]
     Active Substance: RUXOLITINIB
     Indication: Acute lymphocytic leukaemia
     Route: 048
     Dates: start: 20211214, end: 20220222
  10. CYCLOPHOSPHAMIDE [Suspect]
     Active Substance: CYCLOPHOSPHAMIDE
     Indication: Acute lymphocytic leukaemia
     Route: 042
     Dates: start: 20211214

REACTIONS (20)
  - Febrile neutropenia [Recovered/Resolved]
  - Pyrexia [Recovered/Resolved]
  - Cough [Recovering/Resolving]
  - Chest pain [Unknown]
  - Diarrhoea [Unknown]
  - Flank pain [Unknown]
  - Headache [Unknown]
  - Tachycardia [Unknown]
  - Neutrophil count decreased [Recovered/Resolved]
  - Vomiting [Unknown]
  - Nausea [Unknown]
  - Fungal infection [Recovered/Resolved]
  - Pneumonia fungal [Recovered/Resolved]
  - Tissue injury [Unknown]
  - Drug hypersensitivity [Recovered/Resolved]
  - Aspergillus infection [Recovered/Resolved]
  - Oropharyngeal pain [Recovering/Resolving]
  - Mucormycosis [Recovered/Resolved]
  - Pulmonary mass [Unknown]
  - Lung opacity [Unknown]

NARRATIVE: CASE EVENT DATE: 20220201
